FAERS Safety Report 12263272 (Version 2)
Quarter: 2016Q2

REPORT INFORMATION
  Report Type: Spontaneous
  Country: US (occurrence: US)
  Receive Date: 20160413
  Receipt Date: 20160426
  Transmission Date: 20160815
  Serious: Yes (Hospitalization, Other)
  Sender: FDA-Public Use
  Company Number: US-MDT-ADR-2016-00662

PATIENT
  Age: 65 Year
  Sex: Male

DRUGS (2)
  1. METHACHOLINE. [Suspect]
     Active Substance: METHACHOLINE
     Route: 048
  2. BACLOFEN. [Suspect]
     Active Substance: BACLOFEN
     Indication: MUSCLE SPASTICITY
     Route: 037

REACTIONS (1)
  - Mental status changes [Unknown]
